FAERS Safety Report 16127682 (Version 1)
Quarter: 2019Q1

REPORT INFORMATION
  Report Type: Spontaneous
  Country: ES (occurrence: ES)
  Receive Date: 20190328
  Receipt Date: 20190328
  Transmission Date: 20190418
  Serious: Yes (Death, Hospitalization)
  Sender: FDA-Public Use
  Company Number: ES-HORIZON-PRE-0149-2019

PATIENT
  Age: 78 Year
  Sex: Male

DRUGS (2)
  1. PREDNISONE. [Suspect]
     Active Substance: PREDNISONE
     Indication: ERYTHRODERMIC PSORIASIS
     Dosage: 10 MG DAILY
     Route: 048
     Dates: start: 201809, end: 20190223
  2. NEOTIGASON [Concomitant]
     Active Substance: ACITRETIN
     Indication: ERYTHRODERMIC PSORIASIS
     Dosage: 25 MG DAILY
     Route: 048
     Dates: start: 20190123, end: 20190227

REACTIONS (2)
  - Staphylococcal infection [Fatal]
  - Herpes zoster cutaneous disseminated [Fatal]

NARRATIVE: CASE EVENT DATE: 20190129
